FAERS Safety Report 8795995 (Version 1)
Quarter: 2012Q4

REPORT INFORMATION
  Report Type: 
  Country: US (occurrence: US)
  Receive Date: 20120920
  Receipt Date: 20120920
  Transmission Date: 20130627
  Serious: Yes (Hospitalization, Disabling, Other)
  Sender: FDA-Public Use
  Company Number: US-009507513-1110USA01560

PATIENT

DRUGS (4)
  1. FOSAMAX [Suspect]
     Indication: OSTEOPENIA
     Dosage: 70 mg, UNK
     Route: 048
     Dates: start: 2003, end: 2007
  2. FOSAMAX [Suspect]
     Dosage: 70 mg, QW
     Route: 048
     Dates: start: 20100122, end: 20101217
  3. FOSAMAX [Suspect]
     Route: 048
  4. BONIVA [Concomitant]
     Indication: OSTEOPENIA
     Dosage: UNK
     Dates: start: 2007, end: 2009

REACTIONS (28)
  - Femoral neck fracture [Unknown]
  - Fracture nonunion [Unknown]
  - Hip deformity [Unknown]
  - Adverse event [Unknown]
  - Depression [Unknown]
  - Pain [Unknown]
  - Hypothyroidism [Unknown]
  - Anxiety [Unknown]
  - Impaired healing [Unknown]
  - Fatigue [Unknown]
  - Hyperlipidaemia [Unknown]
  - Seasonal affective disorder [Unknown]
  - Weight increased [Unknown]
  - Depressed mood [Unknown]
  - Arthritis [Unknown]
  - Hot flush [Unknown]
  - Ligament sprain [Unknown]
  - Osteoporosis [Unknown]
  - Anaemia postoperative [Unknown]
  - Contusion [Unknown]
  - Meniscus injury [Unknown]
  - Liver function test abnormal [Unknown]
  - Phlebitis [Unknown]
  - Osteoarthritis [Unknown]
  - Hip dysplasia [Unknown]
  - Arthralgia [Unknown]
  - Joint swelling [Unknown]
  - Oedema peripheral [Unknown]
